FAERS Safety Report 16433071 (Version 1)
Quarter: 2019Q2

REPORT INFORMATION
  Report Type: Spontaneous
  Country: FR (occurrence: FR)
  Receive Date: 20190614
  Receipt Date: 20190614
  Transmission Date: 20190711
  Serious: Yes (Hospitalization)
  Sender: FDA-Public Use
  Company Number: FR-PURDUE PHARMA-GBR-2019-0067231

PATIENT
  Age: 59 Year
  Sex: Female

DRUGS (3)
  1. OXYNORM [Suspect]
     Active Substance: OXYCODONE HYDROCHLORIDE
     Indication: GAIT DISTURBANCE
     Dosage: 5 MG TOTAL (STRENGHT 10MG/ML)
     Route: 042
  2. DEXAMETHASONE                      /00016002/ [Suspect]
     Active Substance: DEXAMETHASONE SODIUM PHOSPHATE
     Indication: PROPHYLAXIS
     Dosage: 8 MG, TOTAL
     Route: 042
     Dates: start: 20190107, end: 20190107
  3. KETAMINE                           /00171202/ [Suspect]
     Active Substance: KETAMINE
     Indication: GENERAL ANAESTHESIA
     Dosage: 58.65 MG TOTAL
     Route: 042
     Dates: start: 20190107, end: 20190107

REACTIONS (1)
  - Intracranial pressure increased [Recovered/Resolved with Sequelae]

NARRATIVE: CASE EVENT DATE: 20190210
